FAERS Safety Report 9379698 (Version 2)
Quarter: 2013Q3

REPORT INFORMATION
  Report Type: Spontaneous
  Country: IT (occurrence: IT)
  Receive Date: 20130702
  Receipt Date: 20130906
  Transmission Date: 20140515
  Serious: Yes (Hospitalization, Other)
  Sender: FDA-Public Use
  Company Number: IT-ELI_LILLY_AND_COMPANY-IT201306006833

PATIENT
  Age: 88 Year
  Sex: Female

DRUGS (8)
  1. CYMBALTA [Suspect]
     Indication: MAJOR DEPRESSION
     Dosage: UNK, QD
     Route: 048
     Dates: start: 20130101, end: 20130612
  2. CYMBALTA [Suspect]
     Indication: PSYCHOTIC DISORDER
  3. SOTALOL [Concomitant]
     Dosage: 80 MG, UNKNOWN
     Route: 048
  4. EUTIROX [Concomitant]
     Dosage: 75 UG, UNKNOWN
     Route: 065
  5. MODURETIC [Concomitant]
     Dosage: UNK, UNKNOWN
     Route: 065
  6. TEGRETOL [Concomitant]
     Dosage: 2 DF, UNKNOWN
     Route: 048
     Dates: start: 20121201, end: 20130601
  7. TINSET [Concomitant]
     Dosage: UNK, UNKNOWN
     Route: 065
  8. REMERON [Concomitant]
     Dosage: UNK, UNKNOWN
     Route: 065

REACTIONS (6)
  - Speech disorder [Recovered/Resolved]
  - Disinhibition [Recovered/Resolved]
  - Meningioma [Recovered/Resolved]
  - Mania [Recovered/Resolved]
  - Dyskinesia [Recovered/Resolved]
  - Arteriosclerosis [Recovered/Resolved]
